FAERS Safety Report 14342684 (Version 1)
Quarter: 2017Q4

REPORT INFORMATION
  Report Type: Spontaneous
  Country: US (occurrence: US)
  Receive Date: 20171229
  Receipt Date: 20171229
  Transmission Date: 20180321
  Serious: No
  Sender: FDA-Public Use
  Company Number: None

PATIENT
  Age: 50 Year
  Sex: Female
  Weight: 56.7 kg

DRUGS (1)
  1. MIRALAX [Suspect]
     Active Substance: POLYETHYLENE GLYCOL 3350
     Indication: COLONOSCOPY
     Dosage: ?          OTHER STRENGTH:CAPFULS;QUANTITY:3.5 CAPFULS;?
     Route: 048
     Dates: start: 20171228, end: 20171228

REACTIONS (5)
  - Swelling face [None]
  - Pruritus generalised [None]
  - Urticaria [None]
  - Erythema [None]
  - Feeling cold [None]

NARRATIVE: CASE EVENT DATE: 20171228
